FAERS Safety Report 23299461 (Version 4)
Quarter: 2024Q2

REPORT INFORMATION
  Report Type: Spontaneous
  Country: US (occurrence: US)
  Receive Date: 20231215
  Receipt Date: 20240410
  Transmission Date: 20240716
  Serious: Yes (Hospitalization)
  Sender: FDA-Public Use
  Company Number: US-BRISTOL-MYERS SQUIBB COMPANY-2023-180262

PATIENT
  Age: 77 Year
  Sex: Female
  Weight: 83.46 kg

DRUGS (2)
  1. THALOMID [Suspect]
     Active Substance: THALIDOMIDE
     Indication: Haemorrhage prophylaxis
     Route: 048
     Dates: start: 202202
  2. THALOMID [Suspect]
     Active Substance: THALIDOMIDE
     Indication: Plasma cell myeloma

REACTIONS (7)
  - Constipation [Unknown]
  - Neck pain [Unknown]
  - Ear pain [Unknown]
  - Eye pain [Unknown]
  - Arthralgia [Unknown]
  - Eructation [Unknown]
  - Flatulence [Unknown]
